FAERS Safety Report 23586797 (Version 1)
Quarter: 2024Q1

REPORT INFORMATION
  Report Type: Spontaneous
  Country: CN (occurrence: CN)
  Receive Date: 20240301
  Receipt Date: 20240301
  Transmission Date: 20240410
  Serious: Yes (Other)
  Sender: FDA-Public Use
  Company Number: CN-AMGEN-CHNSP2024039731

PATIENT
  Age: 9 Year
  Sex: Male

DRUGS (9)
  1. BLINCYTO [Suspect]
     Active Substance: BLINATUMOMAB
     Indication: Chemotherapy
     Dosage: 5 MICROGRAM, 24 HOUR, INTRAVENOUS DRIP
     Route: 042
     Dates: start: 20231227, end: 20231227
  2. DEXAMETHASONE SODIUM PHOSPHATE [Concomitant]
     Active Substance: DEXAMETHASONE PHOSPHATE\DEXAMETHASONE SODIUM PHOSPHATE
     Indication: Pyrexia
     Dosage: 5 MILLIGRAM
     Dates: start: 20231227
  3. CALCIUM GLUCONATE [Concomitant]
     Active Substance: CALCIUM GLUCONATE
     Dosage: 1 GRAM
     Dates: start: 20231227
  4. PROMETHAZINE HYDROCHLORIDE [Concomitant]
     Active Substance: PROMETHAZINE HYDROCHLORIDE
     Dosage: 12.5 MILLIGRAM
     Dates: start: 20231227
  5. FAMOTIDINE [Concomitant]
     Active Substance: FAMOTIDINE
     Indication: Prophylaxis
     Dosage: 12 MILLIGRAM, IVGTT, Q12H
     Route: 042
     Dates: start: 20231227
  6. PHOSPHOCREATINE [Concomitant]
     Active Substance: PHOSPHOCREATINE
     Indication: Prophylaxis
     Dosage: 0.5 GRAM, IVGTT
     Route: 042
     Dates: start: 20231227
  7. DEXTROSE [Concomitant]
     Active Substance: DEXTROSE\DEXTROSE MONOHYDRATE
     Dosage: 5 PERCENT, 250 ML
     Dates: start: 20231227
  8. SODIUM BICARBONATE [Concomitant]
     Active Substance: SODIUM BICARBONATE
     Dosage: 125 MILLILITER, QD, IVGTT
     Route: 042
     Dates: start: 20231227
  9. FUROSEMIDE [Concomitant]
     Active Substance: FUROSEMIDE
     Indication: Polyuria
     Dosage: UNK
     Dates: start: 20231228

REACTIONS (1)
  - Drug-induced liver injury [Recovering/Resolving]

NARRATIVE: CASE EVENT DATE: 20231228
